FAERS Safety Report 9640081 (Version 1)
Quarter: 2013Q4

REPORT INFORMATION
  Report Type: Spontaneous
  Country: GB (occurrence: GB)
  Receive Date: 20131023
  Receipt Date: 20131023
  Transmission Date: 20140711
  Serious: Yes (Other)
  Sender: FDA-Public Use
  Company Number: PHFR2013GB005944

PATIENT
  Age: 62 Year
  Sex: Female

DRUGS (1)
  1. CLOZARIL [Suspect]
     Indication: SCHIZOPHRENIA
     Dosage: UNK UKN, UNK
     Route: 048
     Dates: start: 20050726

REACTIONS (4)
  - Left ventricular dysfunction [Unknown]
  - Myocardial infarction [Unknown]
  - White blood cell count increased [Recovered/Resolved]
  - Neutrophil count increased [Recovered/Resolved]
